FAERS Safety Report 8246582-3 (Version None)
Quarter: 2012Q1

REPORT INFORMATION
  Report Type: 
  Country: None (occurrence: None)
  Receive Date: 20120330
  Receipt Date: 20120326
  Transmission Date: 20120608
  Serious: Yes (Life-Threatening, Hospitalization)
  Sender: FDA-Public Use
  Company Number: PHEH2012US006732

PATIENT
  Sex: Female

DRUGS (2)
  1. OMEPRAZOLE [Concomitant]
  2. DIOVAN HCT [Suspect]
     Dosage: 2 DF (160/25MG) DAILY

REACTIONS (5)
  - APPARENT DEATH [None]
  - DRUG DISPENSING ERROR [None]
  - DIZZINESS [None]
  - HYPERSENSITIVITY [None]
  - BLOOD PRESSURE INCREASED [None]
